FAERS Safety Report 5758629-4 (Version None)
Quarter: 2008Q2

REPORT INFORMATION
  Report Type: 
  Country: None (occurrence: None)
  Receive Date: 20080603
  Receipt Date: 20080603
  Transmission Date: 20081010
  Serious: Yes (Life-Threatening, Hospitalization)
  Sender: FDA-Public Use
  Company Number: None

PATIENT
  Age: 53 Year
  Sex: Male
  Weight: 142.7 kg

DRUGS (10)
  1. IMURAN [Suspect]
     Indication: RHEUMATOID ARTHRITIS
     Dosage: 50MG           TWICE DAILY                    PO
     Route: 048
     Dates: start: 20080527, end: 20080527
  2. ATACAND [Concomitant]
  3. PREDNISONE TAB [Concomitant]
  4. ASACOL [Concomitant]
  5. CALCITRIOL [Concomitant]
  6. FLOMAX [Concomitant]
  7. ENTOCORT EC [Concomitant]
  8. LEVAQUIN [Concomitant]
  9. LORCET-HD [Concomitant]
  10. IMURAN [Suspect]
     Indication: COLITIS ULCERATIVE
     Dosage: 50 MG DAILY                PO
     Route: 048
     Dates: start: 20080517, end: 20080525

REACTIONS (8)
  - ACUTE FEBRILE NEUTROPHILIC DERMATOSIS [None]
  - BLISTER [None]
  - DRUG ERUPTION [None]
  - HAEMORRHAGE [None]
  - PYODERMA [None]
  - SCAB [None]
  - SEPTIC SHOCK [None]
  - TOXIC SHOCK SYNDROME [None]
